FAERS Safety Report 7576796-7 (Version None)
Quarter: 2011Q2

REPORT INFORMATION
  Report Type: 
  Country: None (occurrence: None)
  Receive Date: 20110628
  Receipt Date: 20101116
  Transmission Date: 20111010
  Serious: Yes (Death, Hospitalization, Other)
  Sender: FDA-Public Use
  Company Number: US-BAYER-201038910NA

PATIENT
  Age: 71 Year
  Sex: Female
  Weight: 56 kg

DRUGS (36)
  1. BENADRYL [Concomitant]
     Dosage: 25 MG, UNK
     Route: 042
     Dates: start: 20040322
  2. TRASYLOL [Suspect]
     Dosage: 50 ML, Q1HR
     Route: 042
     Dates: start: 20040331, end: 20040331
  3. CORDARONE [Concomitant]
     Indication: CARDIAC DISORDER
     Dosage: 200MG DAILY
     Route: 048
  4. NOVOLIN 70/30 PREFILLED [Concomitant]
     Route: 058
  5. HEPARIN [Concomitant]
     Indication: PRODUCT USED FOR UNKNOWN INDICATION
     Dosage: 45, 000UNITS TOTAL
     Route: 042
     Dates: start: 20040331
  6. BUMEX [Concomitant]
     Dosage: UNK
     Dates: start: 20040404
  7. TRASYLOL [Suspect]
     Indication: CORONARY ARTERY BYPASS
     Dosage: UNK
     Route: 042
     Dates: start: 20040331, end: 20040331
  8. DIGOXIN [Concomitant]
     Indication: PRODUCT USED FOR UNKNOWN INDICATION
     Dosage: 0.125MG DAILY
     Route: 048
  9. ZOCOR [Concomitant]
     Indication: PRODUCT USED FOR UNKNOWN INDICATION
     Dosage: 40MG DAILY
     Route: 048
  10. COUMADIN [Concomitant]
     Indication: PRODUCT USED FOR UNKNOWN INDICATION
     Dosage: 7.5MG AT NIGHT
     Route: 048
  11. ENALAPRIL MALEATE [Concomitant]
     Indication: HYPERTENSION
     Dosage: 10MG TWICE DAILY
     Route: 048
  12. LEVOPHED [Concomitant]
     Dosage: TITRATE
     Route: 042
     Dates: start: 20040331
  13. TRASYLOL [Suspect]
     Dosage: 200 ML
     Dates: start: 20040331, end: 20040331
  14. ZAROXOLYN [Concomitant]
     Indication: PRODUCT USED FOR UNKNOWN INDICATION
     Dosage: 2.5MG DAILY
     Route: 048
  15. AMIODARONE HCL [Concomitant]
     Indication: PRODUCT USED FOR UNKNOWN INDICATION
     Dosage: 150MG THEN TITRATE
     Route: 042
     Dates: start: 20040331
  16. SIMVASTATIN [Concomitant]
     Dosage: 40 MG, QD
     Route: 048
     Dates: start: 20031022
  17. LASIX [Concomitant]
     Indication: CARDIAC DISORDER
     Dosage: 40MG
     Route: 042
     Dates: start: 20040322
  18. LOVASTATIN [Concomitant]
     Indication: BLOOD CHOLESTEROL INCREASED
     Dosage: 40MG DAILY
     Route: 048
  19. FENTANYL [Concomitant]
     Indication: PRODUCT USED FOR UNKNOWN INDICATION
     Dosage: 46MCG TOTAL
     Route: 042
     Dates: start: 20040331
  20. VECURONIUM BROMIDE [Concomitant]
     Indication: PRODUCT USED FOR UNKNOWN INDICATION
     Dosage: 20MG TOTAL
     Route: 042
     Dates: start: 20040331
  21. PROTAMINE SULFATE [Concomitant]
     Indication: PRODUCT USED FOR UNKNOWN INDICATION
     Dosage: 600MG TOTAL
     Route: 042
     Dates: start: 20040331
  22. LASIX [Concomitant]
     Indication: PRODUCT USED FOR UNKNOWN INDICATION
     Dosage: 80MG TWICE A DAY
     Route: 048
  23. MUCOMYST [Concomitant]
     Indication: PRODUCT USED FOR UNKNOWN INDICATION
     Dosage: 600MG TWICE A DAY TIMES 4 DOSES
  24. MANNITOL [Concomitant]
     Indication: PRODUCT USED FOR UNKNOWN INDICATION
     Dosage: 25GMS
     Dates: start: 20040331
  25. VERSED [Concomitant]
     Dosage: 0.5 MG, UNK
     Route: 042
     Dates: start: 20040322
  26. TRASYLOL [Suspect]
     Indication: MITRAL VALVE REPLACEMENT
     Dosage: 200 ML, PRIME
     Route: 042
     Dates: start: 20040331, end: 20040331
  27. LIDOCAINE [Concomitant]
     Indication: PRODUCT USED FOR UNKNOWN INDICATION
     Dosage: 20 UNITS
     Route: 058
     Dates: start: 20040322
  28. IMDUR [Concomitant]
     Indication: CARDIAC DISORDER
     Dosage: 60MG DAILY
     Route: 048
  29. NATRECOR [Concomitant]
     Dosage: UNK
     Dates: start: 20040407
  30. MILRINONE [Concomitant]
     Dosage: UNK
     Dates: start: 20040408
  31. DOPAMINE HCL [Concomitant]
     Dosage: UNK
     Dates: start: 20040408
  32. LASIX [Concomitant]
     Dosage: UNK
     Dates: start: 20040402
  33. ZESTRIL [Concomitant]
     Indication: PRODUCT USED FOR UNKNOWN INDICATION
     Dosage: 40MG DAILY
     Route: 048
  34. MIDAZOLAM HCL [Concomitant]
     Indication: PRODUCT USED FOR UNKNOWN INDICATION
     Dosage: 10MCG TOTAL
     Route: 042
     Dates: start: 20040331
  35. KEFZOL [Concomitant]
     Indication: PRODUCT USED FOR UNKNOWN INDICATION
     Dosage: 2 GM TOTAL
     Route: 042
     Dates: start: 20040331
  36. LIDOCAINE [Concomitant]
     Dosage: 105MG
     Route: 042
     Dates: start: 20040331

REACTIONS (13)
  - RENAL FAILURE [None]
  - RENAL FAILURE ACUTE [None]
  - RENAL INJURY [None]
  - RENAL IMPAIRMENT [None]
  - PAIN [None]
  - DEATH [None]
  - EMOTIONAL DISTRESS [None]
  - FEAR [None]
  - STRESS [None]
  - UNEVALUABLE EVENT [None]
  - INJURY [None]
  - MULTI-ORGAN FAILURE [None]
  - ANXIETY [None]
